FAERS Safety Report 9323395 (Version 2)
Quarter: 2013Q3

REPORT INFORMATION
  Report Type: Spontaneous
  Country: FR (occurrence: FR)
  Receive Date: 20130603
  Receipt Date: 20130708
  Transmission Date: 20140515
  Serious: Yes (Life-Threatening)
  Sender: FDA-Public Use
  Company Number: FR-JNJFOC-20130522081

PATIENT
  Age: 12 Year
  Sex: Male

DRUGS (1)
  1. RISPERDAL [Suspect]
     Indication: ABNORMAL BEHAVIOUR
     Route: 048

REACTIONS (1)
  - Cerebral venous thrombosis [Recovered/Resolved]
